FAERS Safety Report 5035045-4 (Version None)
Quarter: 2006Q2

REPORT INFORMATION
  Report Type: 
  Country: None (occurrence: None)
  Receive Date: 20060622
  Receipt Date: 20060614
  Transmission Date: 20061013
  Serious: Yes (Death)
  Sender: FDA-Public Use
  Company Number: 110991ISR

PATIENT
  Age: 62 Year
  Sex: Male

DRUGS (2)
  1. CITALOPRAM [Suspect]
     Indication: DEPRESSED MOOD
     Dosage: 40 MILLIGRAM
     Route: 048
     Dates: start: 20060117, end: 20060120
  2. ACETAMINOPHEN W/ CODEINE [Concomitant]

REACTIONS (1)
  - COMPLETED SUICIDE [None]
